FAERS Safety Report 6601619-X (Version None)
Quarter: 2010Q1

REPORT INFORMATION
  Report Type: 
  Country: None (occurrence: None)
  Receive Date: 20100225
  Receipt Date: 20100219
  Transmission Date: 20100710
  Serious: Yes (Hospitalization)
  Sender: FDA-Public Use
  Company Number: DE-ROCHE-667298

PATIENT
  Sex: Female

DRUGS (2)
  1. TRASTUZUMAB [Suspect]
     Indication: BREAST CANCER
     Route: 042
     Dates: start: 20090721
  2. LYRICA [Concomitant]
     Indication: TRIGEMINAL NEURALGIA
     Route: 048

REACTIONS (2)
  - MENINGIOMA [None]
  - TRIGEMINAL NEURALGIA [None]
